FAERS Safety Report 23324361 (Version 4)
Quarter: 2024Q4

REPORT INFORMATION
  Report Type: Report from Study
  Country: US (occurrence: US)
  Receive Date: 20231221
  Receipt Date: 20241021
  Transmission Date: 20250115
  Serious: Yes (Hospitalization, Disabling)
  Sender: ROCHE
  Company Number: US-ROCHE-3476486

PATIENT
  Age: 72 Year
  Sex: Female
  Weight: 90.72 kg

DRUGS (7)
  1. OCREVUS [Suspect]
     Active Substance: OCRELIZUMAB
     Indication: Primary progressive multiple sclerosis
     Dosage: DATE OF TREATMENT : 12/FEB/2019, 25/FEB/2023
     Route: 042
     Dates: start: 2016
  2. BACLOFEN [Concomitant]
     Active Substance: BACLOFEN
     Indication: Tremor
     Dosage: TAKES 3 TABLETS OF 10MG^S 3 TIMES A DAY
     Route: 048
     Dates: start: 2016
  3. BACLOFEN [Concomitant]
     Active Substance: BACLOFEN
     Indication: Muscle spasms
     Dosage: MORNING, AFTERNOON, AND EVENING
     Route: 048
     Dates: start: 2023
  4. ROBAXIN [Concomitant]
     Active Substance: METHOCARBAMOL
     Indication: Muscle spasms
     Route: 048
     Dates: start: 2023
  5. GABAPENTIN [Concomitant]
     Active Substance: GABAPENTIN
     Indication: Muscle spasms
     Route: 048
  6. CARBAMAZEPINE [Concomitant]
     Active Substance: CARBAMAZEPINE
     Indication: Muscle spasms
     Route: 048
  7. MODERNA COVID-19 VACCINE [Concomitant]
     Active Substance: ELASOMERAN
     Dosage: 3VACCINES AND 1 BOOSTER ON 07-FEB-2021, 08-MAR-2021, 22-NOV-2021, AND 07-12-2022
     Route: 030
     Dates: start: 20210207, end: 20221207

REACTIONS (15)
  - Infection [Not Recovered/Not Resolved]
  - Wound [Not Recovered/Not Resolved]
  - Fungal infection [Unknown]
  - COVID-19 [Recovered/Resolved]
  - Thrombosis [Unknown]
  - Haematological infection [Unknown]
  - Osteomyelitis [Unknown]
  - Ulcer [Recovered/Resolved with Sequelae]
  - Gait disturbance [Not Recovered/Not Resolved]
  - Body temperature increased [Recovered/Resolved]
  - Hypertension [Not Recovered/Not Resolved]
  - Muscle spasms [Not Recovered/Not Resolved]
  - Pneumonia [Recovered/Resolved]
  - Memory impairment [Not Recovered/Not Resolved]
  - Immunodeficiency [Not Recovered/Not Resolved]

NARRATIVE: CASE EVENT DATE: 20160101
